FAERS Safety Report 7518689-7 (Version None)
Quarter: 2011Q2

REPORT INFORMATION
  Report Type: 
  Country: None (occurrence: None)
  Receive Date: 20110601
  Receipt Date: 20110601
  Transmission Date: 20111010
  Serious: Yes (Life-Threatening)
  Sender: FDA-Public Use
  Company Number: None

PATIENT
  Age: 46 Year
  Sex: Male
  Weight: 102.0593 kg

DRUGS (1)
  1. LANTUS [Suspect]
     Indication: TYPE 2 DIABETES MELLITUS
     Dosage: START 10 UNITS ENDED AT 14 ONCE AT BED TIME CUTANEOUS
     Route: 003
     Dates: start: 20100202, end: 20100313

REACTIONS (10)
  - MEMORY IMPAIRMENT [None]
  - POLYNEUROPATHY [None]
  - GENERAL PHYSICAL HEALTH DETERIORATION [None]
  - CONDITION AGGRAVATED [None]
  - HYPOGLYCAEMIA [None]
  - INSOMNIA [None]
  - LUNG NEOPLASM [None]
  - LETHARGY [None]
  - BLOOD GLUCOSE INCREASED [None]
  - MALAISE [None]
